FAERS Safety Report 7461615-X (Version None)
Quarter: 2011Q2

REPORT INFORMATION
  Report Type: 
  Country: None (occurrence: None)
  Receive Date: 20110506
  Receipt Date: 20110427
  Transmission Date: 20111010
  Serious: Yes (Hospitalization)
  Sender: FDA-Public Use
  Company Number: US-JNJFOC-20110500557

PATIENT
  Sex: Female
  Weight: 104.33 kg

DRUGS (3)
  1. PERCOCET [Concomitant]
     Indication: PAIN
     Route: 048
  2. SIMPONI [Suspect]
     Indication: PSORIATIC ARTHROPATHY
     Route: 058
  3. OXYCODONE [Concomitant]
     Indication: PAIN
     Route: 048

REACTIONS (4)
  - BLOOD COUNT ABNORMAL [None]
  - TENDON RUPTURE [None]
  - FALL [None]
  - LIVER DISORDER [None]
